FAERS Safety Report 6816138-5 (Version None)
Quarter: 2010Q3

REPORT INFORMATION
  Report Type: 
  Country: None (occurrence: None)
  Receive Date: 20100705
  Receipt Date: 20100115
  Transmission Date: 20110219
  Serious: Yes (Hospitalization, Other)
  Sender: FDA-Public Use
  Company Number: US-ASTRAZENECA-2009SE16321

PATIENT
  Age: 42 Year
  Sex: Female
  Weight: 66.2 kg

DRUGS (3)
  1. SEROQUEL [Suspect]
     Indication: SLEEP DISORDER
     Dosage: ONCE DAILY
     Route: 048
     Dates: start: 20040101
  2. SEROQUEL [Suspect]
     Route: 048
     Dates: start: 20050505
  3. ABILIFY [Concomitant]
     Dosage: ONCE DAILY
     Dates: start: 20081101

REACTIONS (7)
  - BLADDER OPERATION [None]
  - MENTAL DISORDER [None]
  - NECK EXPLORATION [None]
  - PANCREATITIS [None]
  - PANCREATITIS ACUTE [None]
  - TYPE 1 DIABETES MELLITUS [None]
  - TYPE 2 DIABETES MELLITUS [None]
